FAERS Safety Report 5264527-5 (Version None)
Quarter: 2007Q1

REPORT INFORMATION
  Report Type: 
  Country: None (occurrence: None)
  Receive Date: 20070314
  Receipt Date: 20070302
  Transmission Date: 20070707
  Serious: Yes (Hospitalization, Other)
  Sender: FDA-Public Use
  Company Number: PHHO2006NL10884

PATIENT
  Age: 64 Year
  Sex: Male
  Weight: 68 kg

DRUGS (1)
  1. EXJADE [Suspect]
     Indication: BLOOD IRON INCREASED
     Dosage: 1375 MG, QD
     Route: 048
     Dates: start: 20060627, end: 20060704

REACTIONS (4)
  - PURPURA [None]
  - PYREXIA [None]
  - RASH GENERALISED [None]
  - RESPIRATORY FAILURE [None]
